FAERS Safety Report 6394958-1 (Version None)
Quarter: 2009Q4

REPORT INFORMATION
  Report Type: 
  Country: None (occurrence: None)
  Receive Date: 20091009
  Receipt Date: 20090928
  Transmission Date: 20100525
  Serious: Yes (Other)
  Sender: FDA-Public Use
  Company Number: BR-BRISTOL-MYERS SQUIBB COMPANY-14806285

PATIENT
  Age: 68 Year
  Sex: Female

DRUGS (1)
  1. MITOMYCIN [Suspect]
     Indication: NEOPLASM OF CORNEA UNSPECIFIED MALIGNANCY
     Dosage: INJECTION
     Route: 061

REACTIONS (1)
  - CORNEAL EROSION [None]
